FAERS Safety Report 7956021-5 (Version None)
Quarter: 2011Q4

REPORT INFORMATION
  Report Type: 
  Country: None (occurrence: None)
  Receive Date: 20111205
  Receipt Date: 20111201
  Transmission Date: 20120403
  Serious: Yes (Other)
  Sender: FDA-Public Use
  Company Number: US-PFIZER INC-2011022561

PATIENT
  Sex: Male
  Weight: 102 kg

DRUGS (13)
  1. LYRICA [Suspect]
     Indication: INJURY
     Dosage: 25 MG, 2X/DAY
     Route: 048
     Dates: start: 20100101, end: 20100101
  2. LYRICA [Suspect]
     Indication: MIGRAINE
     Dosage: 50 MG, 2X/DAY
     Route: 048
     Dates: start: 20100101, end: 20101101
  3. DIFLUCAN [Concomitant]
     Dosage: UNK
  4. VITAMIN B-12 [Concomitant]
     Indication: ASTHENIA
     Dosage: UNK
  5. LYRICA [Suspect]
     Indication: NEURALGIA
     Dosage: UNK
     Route: 048
     Dates: start: 20100901, end: 20100101
  6. RELPAX [Concomitant]
     Indication: MIGRAINE
     Dosage: UNK
  7. SINGULAIR [Concomitant]
     Dosage: UNK
  8. NYSTATIN [Concomitant]
     Indication: FUNGAL INFECTION
     Dosage: UNK
  9. OMEPRAZOLE [Concomitant]
     Dosage: UNK
  10. LYRICA [Suspect]
     Indication: HEADACHE
     Dosage: 50 MG, 2X/DAY
     Route: 048
     Dates: start: 20110112
  11. LAMISIL [Concomitant]
     Indication: FUNGAL INFECTION
     Dosage: UNK
  12. FLEXERIL [Concomitant]
     Dosage: UNK
  13. MOBIC [Concomitant]
     Indication: BONE DISORDER
     Dosage: UNK

REACTIONS (7)
  - HEAD DISCOMFORT [None]
  - DRUG INEFFECTIVE [None]
  - BLOOD CHOLESTEROL INCREASED [None]
  - SINUSITIS [None]
  - SWELLING [None]
  - NEUROPATHY PERIPHERAL [None]
  - FATIGUE [None]
